FAERS Safety Report 7942008-5 (Version None)
Quarter: 2011Q4

REPORT INFORMATION
  Report Type: 
  Country: None (occurrence: None)
  Receive Date: 20111122
  Receipt Date: 20111122
  Transmission Date: 20120403
  Serious: Yes (Other)
  Sender: FDA-Public Use
  Company Number: None

PATIENT
  Sex: Female

DRUGS (2)
  1. MELOXICAM [Suspect]
     Indication: PAIN
     Dosage: 3Q  Q12 PRN PO
     Route: 048
     Dates: start: 20111030, end: 20111101
  2. TEGRETOL [Suspect]
     Dosage: 60 BID PO
     Route: 048

REACTIONS (3)
  - PRODUCT SUBSTITUTION ISSUE [None]
  - PETIT MAL EPILEPSY [None]
  - DIZZINESS [None]
